FAERS Safety Report 21426379 (Version 1)
Quarter: 2022Q4

REPORT INFORMATION
  Report Type: Spontaneous
  Country: US (occurrence: US)
  Receive Date: 20221008
  Receipt Date: 20221008
  Transmission Date: 20230112
  Serious: Yes (Other)
  Sender: FDA-Public Use
  Company Number: US-NAPPMUNDI-USA-2020-0153383

PATIENT
  Sex: Male

DRUGS (6)
  1. DILAUDID [Suspect]
     Active Substance: HYDROMORPHONE HYDROCHLORIDE
     Indication: Product used for unknown indication
     Dosage: 10325,UNK,UNK
     Route: 048
  2. OXYCONTIN [Suspect]
     Active Substance: OXYCODONE HYDROCHLORIDE
     Indication: Pain
     Dosage: 80 MG, TID, 3 TABLETS, DAILY
     Route: 048
     Dates: start: 2004, end: 2007
  3. MORPHINE SULFATE [Suspect]
     Active Substance: MORPHINE SULFATE
     Indication: Pain
     Dosage: 10 MG, TID,1-2 TABLET
     Route: 048
     Dates: start: 2000, end: 2008
  4. VICODIN ES [Suspect]
     Active Substance: ACETAMINOPHEN\HYDROCODONE BITARTRATE
     Indication: Pain
     Dosage: 10/325MG, DAILY
     Route: 048
  5. SUBOXONE [Suspect]
     Active Substance: BUPRENORPHINE HYDROCHLORIDE\NALOXONE HYDROCHLORIDE
     Indication: Product used for unknown indication
     Dosage: 8 MG, BID
     Route: 060
  6. NORCO [Suspect]
     Active Substance: ACETAMINOPHEN\HYDROCODONE BITARTRATE
     Indication: Pain
     Dosage: 10/325 MG
     Route: 048
     Dates: start: 2000, end: 2009

REACTIONS (7)
  - Drug dependence [Unknown]
  - Drug abuse [Unknown]
  - Off label use [Unknown]
  - Back disorder [Not Recovered/Not Resolved]
  - Vomiting [Unknown]
  - Loss of personal independence in daily activities [Unknown]
  - Unevaluable event [Unknown]
